FAERS Safety Report 20309881 (Version 1)
Quarter: 2022Q1

REPORT INFORMATION
  Report Type: Spontaneous
  Country: CN (occurrence: CN)
  Receive Date: 20220107
  Receipt Date: 20220107
  Transmission Date: 20220423
  Serious: Yes (Other)
  Sender: FDA-Public Use
  Company Number: CN-009507513-2201CHN000222

PATIENT
  Age: 78 Year
  Sex: Female
  Weight: 55 kg

DRUGS (1)
  1. CILASTATIN SODIUM\IMIPENEM [Suspect]
     Active Substance: CILASTATIN SODIUM\IMIPENEM
     Indication: Infection
     Dosage: 500 MILLIGRAM, Q8H
     Route: 041
     Dates: start: 20211218, end: 20211222

REACTIONS (4)
  - Epilepsy [Recovered/Resolved]
  - Metabolic encephalopathy [Unknown]
  - Cortical laminar necrosis [Unknown]
  - Malabsorption [Unknown]

NARRATIVE: CASE EVENT DATE: 20211201
